FAERS Safety Report 6877175-8 (Version None)
Quarter: 2010Q3

REPORT INFORMATION
  Report Type: 
  Country: None (occurrence: None)
  Receive Date: 20100727
  Receipt Date: 20100712
  Transmission Date: 20110219
  Serious: Yes (Other)
  Sender: FDA-Public Use
  Company Number: US-ELI_LILLY_AND_COMPANY-US201007002973

PATIENT
  Sex: Male

DRUGS (2)
  1. CYMBALTA [Suspect]
     Indication: DEPRESSION
     Dosage: 60 MG, 2/D
     Route: 065
     Dates: end: 20100401
  2. XANAX [Concomitant]
     Dosage: 0.5 MG, UNK

REACTIONS (4)
  - DEPRESSION [None]
  - SOCIAL AVOIDANT BEHAVIOUR [None]
  - SPINAL FUSION SURGERY [None]
  - SURGERY [None]
